FAERS Safety Report 11821665 (Version 2)
Quarter: 2017Q4

REPORT INFORMATION
  Report Type: Spontaneous
  Country: US (occurrence: US)
  Receive Date: 20151210
  Receipt Date: 20171121
  Transmission Date: 20180320
  Serious: No
  Sender: FDA-Public Use
  Company Number: US-JNJFOC-20150508183

PATIENT
  Age: 50 Year
  Sex: Male

DRUGS (4)
  1. SYNTHROID [Concomitant]
     Active Substance: LEVOTHYROXINE SODIUM
     Dosage: 100 MCG, UNK
  2. MESALAMINE. [Concomitant]
     Active Substance: MESALAMINE
  3. IMBRUVICA [Suspect]
     Active Substance: IBRUTINIB
     Indication: CHRONIC LYMPHOCYTIC LEUKAEMIA
     Route: 048
     Dates: start: 20150113
  4. IMBRUVICA [Suspect]
     Active Substance: IBRUTINIB
     Indication: CHRONIC LYMPHOCYTIC LEUKAEMIA
     Route: 048
     Dates: start: 20161227

REACTIONS (3)
  - Muscle tightness [Unknown]
  - Dry mouth [Unknown]
  - Dysphagia [Unknown]

NARRATIVE: CASE EVENT DATE: 2015
